FAERS Safety Report 25850594 (Version 1)
Quarter: 2025Q3

REPORT INFORMATION
  Report Type: Report from Study
  Country: US (occurrence: US)
  Receive Date: 20250926
  Receipt Date: 20250926
  Transmission Date: 20251021
  Serious: Yes (Other)
  Sender: JOHNSON AND JOHNSON
  Company Number: US-JNJFOC-20250921923

PATIENT
  Sex: Female

DRUGS (3)
  1. RYBREVANT [Suspect]
     Active Substance: AMIVANTAMAB-VMJW
     Indication: Non-small cell lung cancer
     Route: 042
     Dates: start: 202405
  2. CARBOPLATIN [Concomitant]
     Active Substance: CARBOPLATIN
     Indication: Non-small cell lung cancer
     Dates: start: 202405, end: 202410
  3. ALIMTA [Concomitant]
     Active Substance: PEMETREXED DISODIUM
     Indication: Product used for unknown indication
     Dates: start: 202405

REACTIONS (8)
  - Multiple sclerosis [Unknown]
  - Brain fog [Unknown]
  - Fatigue [Unknown]
  - Neoplasm [Unknown]
  - Retinal laser coagulation [Unknown]
  - Stomatitis [Unknown]
  - Rash [Unknown]
  - Paronychia [Unknown]

NARRATIVE: CASE EVENT DATE: 20240101
